FAERS Safety Report 16143735 (Version 1)
Quarter: 2019Q2

REPORT INFORMATION
  Report Type: Spontaneous
  Country: US (occurrence: US)
  Receive Date: 20190401
  Receipt Date: 20190401
  Transmission Date: 20190711
  Serious: No
  Sender: FDA-Public Use
  Company Number: US-PFIZER INC-2019136798

PATIENT
  Sex: Male

DRUGS (1)
  1. EUCRISA [Suspect]
     Active Substance: CRISABOROLE
     Dosage: UNK [APPLIED TO AFFECTED AREAS ON LEGS]

REACTIONS (3)
  - Application site pain [Unknown]
  - Crying [Unknown]
  - Pain in extremity [Unknown]
